APPROVED DRUG PRODUCT: A-POXIDE
Active Ingredient: CHLORDIAZEPOXIDE HYDROCHLORIDE
Strength: 5MG
Dosage Form/Route: CAPSULE;ORAL
Application: A085447 | Product #001
Applicant: ABBOTT LABORATORIES PHARMACEUTICAL PRODUCTS DIV
Approved: Approved Prior to Jan 1, 1982 | RLD: No | RS: No | Type: DISCN